FAERS Safety Report 14225337 (Version 1)
Quarter: 2017Q4

REPORT INFORMATION
  Report Type: Spontaneous
  Country: US (occurrence: US)
  Receive Date: 20171127
  Receipt Date: 20171127
  Transmission Date: 20180321
  Serious: No
  Sender: FDA-Public Use
  Company Number: US-PFIZER INC-2017505811

PATIENT
  Age: 82 Year
  Sex: Female
  Weight: 70.31 kg

DRUGS (2)
  1. CLINDAMYCIN HCL [Suspect]
     Active Substance: CLINDAMYCIN HYDROCHLORIDE
     Indication: ORAL SURGERY
     Dosage: 300 MG, 2X/DAY (TWO CAPSULES BY MOUTH PRIOR TO SURGERY)
     Route: 048
  2. CLINDAMYCIN HCL [Suspect]
     Active Substance: CLINDAMYCIN HYDROCHLORIDE
     Dosage: 300 MG, 4X/DAY, (THEN ONE EVERY 6 HOURS)
     Route: 048

REACTIONS (1)
  - Diarrhoea [Unknown]
